FAERS Safety Report 6572107-4 (Version None)
Quarter: 2010Q1

REPORT INFORMATION
  Report Type: 
  Country: None (occurrence: None)
  Receive Date: 20100205
  Receipt Date: 20100125
  Transmission Date: 20100710
  Serious: Yes (Other)
  Sender: FDA-Public Use
  Company Number: PHEH2007US12080

PATIENT
  Sex: Male

DRUGS (8)
  1. ZOMETA [Suspect]
     Indication: PROSTATE CANCER
     Dosage: MONTHLY
  2. ZOMETA [Suspect]
     Indication: METASTASES TO BONE
  3. MEDROL [Concomitant]
     Dosage: UNK
  4. AMARYL [Concomitant]
     Dosage: 4 MG / DAILY
  5. GLUCOPHAGE [Concomitant]
     Dosage: 500 MG / TID
  6. LITHIUM CARBONATE [Concomitant]
     Dosage: 300 MG / TID
  7. ATIVAN [Concomitant]
     Dosage: UNK
     Route: 048
  8. PROZAC [Concomitant]
     Dosage: UNK

REACTIONS (31)
  - ABDOMINAL PAIN [None]
  - ALCOHOL ABUSE [None]
  - ALCOHOL DETOXIFICATION [None]
  - ANHEDONIA [None]
  - ANXIETY [None]
  - ARTERIOSCLEROSIS [None]
  - BIPOLAR DISORDER [None]
  - CHEST PAIN [None]
  - CONSTIPATION [None]
  - DEFORMITY [None]
  - DEPRESSION [None]
  - DISCOMFORT [None]
  - EMOTIONAL DISTRESS [None]
  - FACIAL PALSY [None]
  - HEPATITIS C [None]
  - HYPOPHAGIA [None]
  - INJURY [None]
  - MALIGNANT NEOPLASM PROGRESSION [None]
  - METASTASES TO SPINE [None]
  - OSTEOARTHRITIS [None]
  - OSTEONECROSIS [None]
  - OSTEOSARCOMA METASTATIC [None]
  - PAIN [None]
  - PLEURISY [None]
  - RIB FRACTURE [None]
  - SINUSITIS [None]
  - SLEEP APNOEA SYNDROME [None]
  - SNORING [None]
  - SPINAL OSTEOARTHRITIS [None]
  - TYPE 2 DIABETES MELLITUS [None]
  - UVULECTOMY [None]
